FAERS Safety Report 10072582 (Version 2)
Quarter: 2014Q2

REPORT INFORMATION
  Report Type: Spontaneous
  Country: GB (occurrence: None)
  Receive Date: 20140409
  Receipt Date: 20140428
  Transmission Date: 20141212
  Serious: Yes (Death, Other)
  Sender: FDA-Public Use
  Company Number: AUR-APL-2014-04178

PATIENT
  Age: 65 Year
  Sex: Female

DRUGS (12)
  1. SIMVASTATIN [Suspect]
     Indication: PRODUCT USED FOR UNKNOWN INDICATION
  2. ABATACEPT [Suspect]
     Indication: RHEUMATOID ARTHRITIS
     Dosage: 25MG (750 MG, 1 IN 1M)
     Route: 042
     Dates: start: 201307
  3. FOLIC ACID [Suspect]
     Indication: PRODUCT USED FOR UNKNOWN INDICATION
  4. HYDROXYCHLOROQUINE [Suspect]
     Indication: PRODUCT USED FOR UNKNOWN INDICATION
     Dosage: 400MG, (200MG, 2 IN 1D)
  5. METHOTREXATE (METHOTREXATE) [Suspect]
     Indication: PRODUCT USED FOR UNKNOWN INDICATION
     Dosage: 0.7143MG (5MG, 1 IN 1WK)
  6. PREDNISOLONE [Suspect]
     Indication: PRODUCT USED FOR UNKNOWN INDICATION
     Dosage: 15MG, 1 D
  7. WARFARIN [Suspect]
     Indication: PRODUCT USED FOR UNKNOWN INDICATION
  8. ALENDRONATE (ALENDRONATE SODIUM) [Concomitant]
  9. CALCICHEW D3 (LEKOVIT CA) [Concomitant]
  10. IMMUNOGLOBULIN (IMMUNOGLOBULIN HUMAN NORMAL) [Concomitant]
  11. IODINE (IODINE) [Concomitant]
  12. QUININE SULFATE (QUININE SULFATE) [Concomitant]

REACTIONS (6)
  - Deep vein thrombosis [None]
  - Fall [None]
  - Wound [None]
  - Laceration [None]
  - Vascular rupture [None]
  - General physical health deterioration [None]
